FAERS Safety Report 11889980 (Version 1)
Quarter: 2016Q1

REPORT INFORMATION
  Report Type: Spontaneous
  Country: US (occurrence: US)
  Receive Date: 20160105
  Receipt Date: 20160105
  Transmission Date: 20160526
  Serious: No
  Sender: FDA-Public Use
  Company Number: US-PERRIGO-15US009707

PATIENT
  Age: 81 Year
  Sex: Female
  Weight: 58.96 kg

DRUGS (3)
  1. GUAIFENESIN 600 MG 498 [Suspect]
     Active Substance: GUAIFENESIN
     Dosage: 600 MG, SINGLE
     Route: 048
     Dates: start: 20150902, end: 20150902
  2. GUAIFENESIN 600 MG 498 [Suspect]
     Active Substance: GUAIFENESIN
     Indication: INCREASED UPPER AIRWAY SECRETION
     Dosage: 600 MG, EVERY 12 HOURS
     Route: 048
     Dates: start: 20150831, end: 20150831
  3. OMEPRAZOLE. [Concomitant]
     Active Substance: OMEPRAZOLE
     Indication: GASTROOESOPHAGEAL REFLUX DISEASE
     Dosage: UNK
     Route: 048

REACTIONS (3)
  - Headache [Recovered/Resolved]
  - Nausea [Recovered/Resolved]
  - Drug ineffective [Unknown]

NARRATIVE: CASE EVENT DATE: 20150831
